FAERS Safety Report 6466608-7 (Version None)
Quarter: 2009Q4

REPORT INFORMATION
  Report Type: 
  Country: None (occurrence: None)
  Receive Date: 20091202
  Receipt Date: 20091120
  Transmission Date: 20100525
  Serious: Yes (Other)
  Sender: FDA-Public Use
  Company Number: AU-CELGENEUS-008-20785-09081526

PATIENT
  Sex: Female

DRUGS (7)
  1. THALIDOMIDE [Suspect]
     Indication: MULTIPLE MYELOMA
     Route: 048
     Dates: start: 20090611, end: 20090813
  2. THALIDOMIDE [Suspect]
     Route: 048
     Dates: start: 20090814, end: 20090828
  3. FENTANYL-100 [Concomitant]
     Indication: PAIN
     Route: 062
     Dates: start: 20090706
  4. ENDONE [Concomitant]
     Indication: PAIN
     Route: 065
     Dates: start: 20090423
  5. ENOXAPARIN SODIUM [Concomitant]
     Route: 058
     Dates: start: 20090611
  6. DILTIAZEM [Concomitant]
     Indication: DRUG USE FOR UNKNOWN INDICATION
     Route: 065
  7. PAMIDRONATE DISODIUM [Concomitant]
     Indication: DRUG USE FOR UNKNOWN INDICATION
     Route: 051

REACTIONS (2)
  - NEUROPATHY PERIPHERAL [None]
  - NOCTURIA [None]
